FAERS Safety Report 7490047-3 (Version None)
Quarter: 2011Q2

REPORT INFORMATION
  Report Type: 
  Country: None (occurrence: None)
  Receive Date: 20110517
  Receipt Date: 20110517
  Transmission Date: 20111010
  Serious: No
  Sender: FDA-Public Use
  Company Number: None

PATIENT
  Age: 11 Year
  Sex: Male
  Weight: 45.3597 kg

DRUGS (2)
  1. CETIRIZINE HCL [Suspect]
     Indication: MULTIPLE ALLERGIES
     Dosage: 10MG ONCE DAILY PO
     Route: 048
     Dates: start: 20090901, end: 20110514
  2. CETIRIZINE HCL [Suspect]
     Indication: SEASONAL ALLERGY
     Dosage: 10MG ONCE DAILY PO
     Route: 048
     Dates: start: 20090901, end: 20110514

REACTIONS (10)
  - IRRITABILITY [None]
  - HEADACHE [None]
  - FATIGUE [None]
  - ABDOMINAL PAIN UPPER [None]
  - DYSPNOEA [None]
  - MOOD SWINGS [None]
  - PRURITUS [None]
  - WITHDRAWAL SYNDROME [None]
  - ANGER [None]
  - ABNORMAL BEHAVIOUR [None]
